FAERS Safety Report 9174985 (Version 1)
Quarter: 2013Q1

REPORT INFORMATION
  Report Type: Spontaneous
  Country: SK (occurrence: SK)
  Receive Date: 20130320
  Receipt Date: 20130320
  Transmission Date: 20140127
  Serious: Yes (Hospitalization)
  Sender: FDA-Public Use
  Company Number: SK-ELI_LILLY_AND_COMPANY-SK201303003410

PATIENT
  Age: 35 Year
  Sex: Female

DRUGS (5)
  1. ZYPADHERA [Suspect]
     Indication: SCHIZOPHRENIA
     Dosage: 300 MG, 2/M
     Route: 030
     Dates: start: 201105, end: 201110
  2. ZYPADHERA [Suspect]
     Dosage: 300 MG, 2/M
     Dates: start: 201111
  3. OLANZAPINE [Suspect]
     Dosage: 5 MG, QD
     Dates: start: 201209, end: 201210
  4. OLANZAPINE [Suspect]
     Dosage: 5 MG, QD
     Dates: start: 201212, end: 201212
  5. ALPRAZOLAM [Concomitant]
     Dosage: UNK

REACTIONS (5)
  - Depression [Unknown]
  - Fatigue [Unknown]
  - Weight increased [Unknown]
  - Increased appetite [Unknown]
  - Prescribed overdose [Unknown]
